FAERS Safety Report 19958326 (Version 1)
Quarter: 2021Q4

REPORT INFORMATION
  Report Type: Spontaneous
  Country: US (occurrence: US)
  Receive Date: 20211015
  Receipt Date: 20211015
  Transmission Date: 20220303
  Serious: Yes (Other)
  Sender: FDA-Public Use
  Company Number: US-GLAXOSMITHKLINE-US2021GSK213866

PATIENT
  Sex: Female

DRUGS (4)
  1. ZANTAC [Suspect]
     Active Substance: RANITIDINE HYDROCHLORIDE
     Indication: Reflux laryngitis
     Dosage: UNK UNK, WE
     Route: 065
     Dates: start: 201701, end: 201706
  2. ZANTAC [Suspect]
     Active Substance: RANITIDINE HYDROCHLORIDE
     Indication: Reflux laryngitis
     Dosage: UNK UNK, WE
     Route: 065
     Dates: start: 201701, end: 201706
  3. RANITIDINE [Suspect]
     Active Substance: RANITIDINE
     Indication: Reflux laryngitis
     Dosage: UNK, WE
     Route: 065
     Dates: start: 201701, end: 201706
  4. RANITIDINE [Suspect]
     Active Substance: RANITIDINE
     Indication: Reflux laryngitis
     Dosage: UNK, WE
     Route: 065
     Dates: start: 201701, end: 201706

REACTIONS (1)
  - Renal cancer [Unknown]
